FAERS Safety Report 12645793 (Version 1)
Quarter: 2016Q3

REPORT INFORMATION
  Report Type: Spontaneous
  Country: US (occurrence: US)
  Receive Date: 20160811
  Receipt Date: 20160811
  Transmission Date: 20161109
  Serious: No
  Sender: FDA-Public Use
  Company Number: US-ENDO PHARMACEUTICALS INC.-2016-000347

PATIENT
  Sex: Female

DRUGS (3)
  1. LEVAQUIN [Suspect]
     Active Substance: LEVOFLOXACIN
     Indication: BRONCHITIS
     Route: 065
     Dates: start: 201110, end: 2011
  2. PREDNISONE TABLETS 5MG [Suspect]
     Active Substance: PREDNISONE
     Indication: BRONCHITIS
     Route: 065
     Dates: start: 201110
  3. XANAX [Concomitant]
     Active Substance: ALPRAZOLAM
     Indication: PRODUCT USED FOR UNKNOWN INDICATION

REACTIONS (5)
  - Muscle atrophy [Unknown]
  - Burning sensation [Unknown]
  - Tendon disorder [Unknown]
  - Pain [Unknown]
  - Gastrooesophageal reflux disease [None]

NARRATIVE: CASE EVENT DATE: 2011
